FAERS Safety Report 13663780 (Version 5)
Quarter: 2017Q3

REPORT INFORMATION
  Report Type: Report from Study
  Country: IE (occurrence: IE)
  Receive Date: 20170619
  Receipt Date: 20170831
  Transmission Date: 20171127
  Serious: Yes (Life-Threatening, Hospitalization, Other)
  Sender: FDA-Public Use
  Company Number: IE-BRISTOL-MYERS SQUIBB COMPANY-BMS-2017-048388

PATIENT
  Age: 70 Year
  Sex: Female
  Weight: 77.4 kg

DRUGS (59)
  1. SENNA                              /00142201/ [Concomitant]
     Active Substance: SENNA LEAF
     Indication: CONSTIPATION
     Dosage: 2 UNK, UNK
     Route: 048
     Dates: start: 20170510
  2. METOCLOPRAMIDE. [Concomitant]
     Active Substance: METOCLOPRAMIDE
     Indication: PROPHYLAXIS
     Dosage: 20 MG, UNK
     Route: 048
     Dates: start: 20170505, end: 201705
  3. CIPROFLOXACIN. [Concomitant]
     Active Substance: CIPROFLOXACIN
     Indication: PNEUMONIA
     Dosage: 400 MG, UNK
     Route: 042
     Dates: start: 20170531, end: 20170602
  4. RANITIDINE. [Concomitant]
     Active Substance: RANITIDINE
     Indication: GASTRIC DISORDER
     Route: 065
  5. SODIUM [Concomitant]
     Active Substance: SODIUM
     Indication: NUTRITIONAL SUPPLEMENTATION
     Dosage: 80 MMOL, UNK
     Route: 042
     Dates: start: 20170526, end: 20170526
  6. EXPUTEX [Concomitant]
     Indication: PNEUMONIA
     Dosage: 15 ML, UNK
     Route: 048
     Dates: start: 20170531, end: 20170531
  7. MIDAZOLAM [Concomitant]
     Active Substance: MIDAZOLAM HYDROCHLORIDE
     Indication: PRODUCT USED FOR UNKNOWN INDICATION
     Dosage: 4 MG, UNK
     Route: 042
     Dates: start: 20170601
  8. AMIODARONE [Concomitant]
     Active Substance: AMIODARONE
     Indication: CARDIAC ARREST
     Dosage: 300 MG, UNK
     Route: 042
     Dates: start: 20170601
  9. BUTRANS [Concomitant]
     Active Substance: BUPRENORPHINE
     Indication: ARTHRALGIA
     Dosage: 1 DF, UNK
     Route: 062
     Dates: start: 20170515
  10. PHOSPHATE                          /01053101/ [Concomitant]
     Indication: NUTRITIONAL SUPPLEMENTATION
     Dosage: 80 MMOL/L, UNK
     Route: 065
     Dates: start: 20170526, end: 20170526
  11. MORPHINE [Concomitant]
     Active Substance: MORPHINE
     Indication: PAIN
     Dosage: 60 MG, UNK
     Route: 042
     Dates: start: 20170525, end: 20170526
  12. PHENYLEPHRINE [Concomitant]
     Active Substance: PHENYLEPHRINE\PHENYLEPHRINE HYDROCHLORIDE
     Indication: PRODUCT USED FOR UNKNOWN INDICATION
     Dosage: 150 ?G, UNK
     Route: 042
     Dates: start: 20170606, end: 20170606
  13. OXYNORM [Concomitant]
     Active Substance: OXYCODONE HYDROCHLORIDE
     Indication: ARTHRALGIA
     Dosage: 5 MG, UNK
     Route: 048
     Dates: start: 20170511, end: 20170522
  14. ZOPICLONE [Concomitant]
     Active Substance: ZOPICLONE
     Indication: INSOMNIA
     Dosage: 7.5 MG, UNK
     Route: 048
     Dates: start: 20170503
  15. SOLIVITO                           /01797801/ [Concomitant]
     Indication: PROPHYLAXIS
     Dosage: 1 DF, UNK
     Route: 065
     Dates: start: 20170526
  16. CLEXANE [Concomitant]
     Active Substance: ENOXAPARIN SODIUM
     Indication: PROPHYLAXIS
     Dosage: 40 MG, UNK
     Route: 058
     Dates: start: 20170527, end: 20170531
  17. HEPARIN [Concomitant]
     Active Substance: HEPARIN SODIUM
     Indication: PROPHYLAXIS
     Dosage: 10000 IU, UNK
     Route: 042
     Dates: start: 20170524, end: 20170526
  18. NOREPINEPHRINE. [Concomitant]
     Active Substance: NOREPINEPHRINE
     Indication: CARDIAC ARREST
     Dosage: 3 MG, UNK
     Route: 042
     Dates: start: 20170524, end: 20170526
  19. PARACETAMOL [Concomitant]
     Active Substance: ACETAMINOPHEN
     Indication: PAIN
     Dosage: 4 G, UNK
     Route: 042
     Dates: start: 20170602
  20. NIVOLUMAB [Suspect]
     Active Substance: NIVOLUMAB
     Indication: MALIGNANT MELANOMA
     Dosage: 77 MG, UNK
     Route: 042
     Dates: start: 20170329
  21. PREDNISOLONE. [Concomitant]
     Active Substance: PREDNISOLONE
     Indication: ARTHRALGIA
     Dosage: 5 MG, QD
     Route: 048
     Dates: start: 20170515, end: 20170518
  22. TEVETEN                            /01347301/ [Concomitant]
     Indication: HYPERTENSION
     Dosage: 600 MG, UNK
     Route: 048
     Dates: start: 20000101, end: 20170518
  23. SALBUTAMOL [Concomitant]
     Active Substance: ALBUTEROL
     Indication: PNEUMONIA
     Dosage: 20 MG, UNK
     Route: 055
     Dates: start: 20170525
  24. HALOPERIDOL. [Concomitant]
     Active Substance: HALOPERIDOL
     Indication: PROPHYLAXIS
     Dosage: 5 MG, UNK
     Route: 042
     Dates: start: 20170527, end: 20170527
  25. MORPHINE [Concomitant]
     Active Substance: MORPHINE
     Indication: CARDIAC ARREST
     Route: 065
  26. GENTAMICIN. [Concomitant]
     Active Substance: GENTAMICIN
     Indication: PNEUMONIA ASPIRATION
     Dosage: 400 MG, UNK
     Route: 042
     Dates: start: 20170601, end: 20170601
  27. CEFOTAXIME [Concomitant]
     Active Substance: CEFOTAXIME SODIUM
     Indication: INFECTION
     Dosage: 3 G, UNK
     Route: 042
     Dates: start: 20170601, end: 20170609
  28. IPILIMUMAB [Suspect]
     Active Substance: IPILIMUMAB
     Indication: MALIGNANT MELANOMA
     Dosage: 231 MG, UNK
     Route: 042
     Dates: start: 20170329
  29. IBUPROFEN                          /00109205/ [Concomitant]
     Active Substance: IBUPROFEN
     Indication: ARTHRALGIA
     Dosage: 1200 MG, UNK
     Route: 048
     Dates: start: 20170508
  30. SEVREDOL [Concomitant]
     Active Substance: MORPHINE
     Indication: ARTHRALGIA
     Dosage: 5 MG, QD
     Route: 048
     Dates: start: 20170515, end: 20170519
  31. METRONIDAZOLE. [Concomitant]
     Active Substance: METRONIDAZOLE
     Indication: PNEUMONIA
     Dosage: 1 G, UNK
     Route: 042
     Dates: start: 20170531, end: 20170609
  32. RANITIDINE. [Concomitant]
     Active Substance: RANITIDINE
     Indication: PROPHYLAXIS
     Dosage: 50 MG, UNK
     Route: 042
     Dates: start: 20170525
  33. ADDITRACE [Concomitant]
     Active Substance: MINERALS
     Indication: NUTRITIONAL SUPPLEMENTATION
     Dosage: 1 DF, UNK
     Route: 042
     Dates: start: 20170526, end: 201706
  34. DULCOLAX (BISACODYL) [Concomitant]
     Active Substance: BISACODYL
     Indication: CONSTIPATION
     Dosage: 1 DF, UNIT
     Route: 054
     Dates: start: 20170526, end: 20170528
  35. NOREPINEPHRINE. [Concomitant]
     Active Substance: NOREPINEPHRINE
     Indication: RESPIRATORY FAILURE
     Route: 065
  36. NORADRENALIN                       /00127501/ [Concomitant]
     Active Substance: NOREPINEPHRINE\NOREPINEPHRINE BITARTRATE
     Indication: PRODUCT USED FOR UNKNOWN INDICATION
     Dosage: 9 MG, UNK
     Route: 042
     Dates: start: 20170601
  37. MAGNESIUM SULFATE. [Concomitant]
     Active Substance: MAGNESIUM SULFATE
     Indication: PRODUCT USED FOR UNKNOWN INDICATION
     Dosage: 2 G, UNK
     Route: 042
     Dates: start: 20170604
  38. DIOCTYL [Concomitant]
     Active Substance: DOCUSATE SODIUM
     Indication: CONSTIPATION
     Dosage: 200 MG, QD
     Route: 048
     Dates: start: 20170518
  39. DELTACORTRIL [Concomitant]
     Active Substance: PREDNISOLONE
     Indication: ARTHRALGIA
     Dosage: 35 MG, QD
     Route: 048
     Dates: start: 20170519, end: 20170522
  40. MOVICOL [Concomitant]
     Active Substance: POLYETHYLENE GLYCOL 3350\POTASSIUM CHLORIDE\SODIUM BICARBONATE\SODIUM CHLORIDE
     Indication: CONSTIPATION
     Dosage: 6 TAB, UNK
     Route: 048
     Dates: start: 20170519, end: 20170522
  41. FISH OIL OMEGA 3 [Concomitant]
     Active Substance: FISH OIL
     Indication: PROPHYLAXIS
     Dosage: 1 DF, UNK
     Route: 048
     Dates: start: 20000101, end: 201705
  42. DEXAMETHASONE. [Concomitant]
     Active Substance: DEXAMETHASONE
     Indication: ARTHRALGIA
     Dosage: 4 MG, UNK
     Route: 048
     Dates: start: 20170505, end: 201705
  43. ACTRAPID [Concomitant]
     Active Substance: INSULIN HUMAN
     Indication: PRODUCT USED FOR UNKNOWN INDICATION
     Dosage: 100 MG, UNK
     Route: 042
     Dates: start: 20170526, end: 20170526
  44. SYNACTHEN                          /00055703/ [Concomitant]
     Indication: PRODUCT USED FOR UNKNOWN INDICATION
     Dosage: 250 ?G, UNK
     Route: 042
     Dates: start: 20170607
  45. LEVETIRACETAM. [Concomitant]
     Active Substance: LEVETIRACETAM
     Indication: DEMYELINATION
     Route: 065
  46. LACTULOSE. [Concomitant]
     Active Substance: LACTULOSE
     Indication: CONSTIPATION
     Dosage: 45 ML, UNK
     Route: 048
     Dates: start: 20170509
  47. LERCANIDIPINE [Concomitant]
     Active Substance: LERCANIDIPINE
     Indication: PRODUCT USED FOR UNKNOWN INDICATION
     Dosage: 10 MG, QD
     Route: 048
     Dates: start: 20170523, end: 20170523
  48. TAZOCIN [Concomitant]
     Active Substance: PIPERACILLIN SODIUM\TAZOBACTAM SODIUM
     Indication: PNEUMONIA
     Dosage: 13.5 G, UNK
     Route: 042
     Dates: start: 20170524, end: 20170531
  49. GLYCEROL [Concomitant]
     Active Substance: GLYCERIN
     Indication: CONSTIPATION
     Dosage: 1 UNK, UNK
     Route: 054
     Dates: start: 20170526, end: 20170528
  50. PROPOFOL. [Concomitant]
     Active Substance: PROPOFOL
     Indication: PRODUCT USED FOR UNKNOWN INDICATION
     Dosage: 100 MG, UNK
     Route: 042
     Dates: start: 20170525, end: 20170526
  51. PHOSPHATE                          /01053101/ [Concomitant]
     Indication: PRODUCT USED FOR UNKNOWN INDICATION
     Dosage: 40 MMOL, UNK
     Route: 042
     Dates: start: 20170603, end: 20170604
  52. LIDOCAINE. [Concomitant]
     Active Substance: LIDOCAINE
     Indication: ARTHRALGIA
     Dosage: 1 DF, UNK
     Route: 062
     Dates: start: 20170510
  53. PANTOPRAZOLE [Concomitant]
     Active Substance: PANTOPRAZOLE
     Indication: PROPHYLAXIS
     Dosage: 40 MG, QD
     Route: 048
     Dates: start: 20170515
  54. POTASSIUM [Concomitant]
     Active Substance: POTASSIUM
     Indication: NUTRITIONAL SUPPLEMENTATION
     Dosage: 40 MMOL, UNK
     Route: 042
     Dates: start: 20170525
  55. ATROVENT [Concomitant]
     Active Substance: IPRATROPIUM BROMIDE
     Indication: PNEUMONIA
     Dosage: 10 ML, UNK
     Route: 055
     Dates: start: 20170601, end: 20170601
  56. ENOXAPARIN [Concomitant]
     Active Substance: ENOXAPARIN
     Indication: PROPHYLAXIS
     Dosage: 40 MG, UNK
     Route: 060
     Dates: start: 20170601
  57. GLYCERYL TRINITRATE [Concomitant]
     Active Substance: NITROGLYCERIN
     Indication: PROPHYLAXIS
     Dosage: UNK
     Route: 062
     Dates: start: 20170604, end: 20170606
  58. FRUSEMIDE                          /00032601/ [Concomitant]
     Active Substance: FUROSEMIDE
     Indication: PROPHYLAXIS
     Dosage: 80 MG, UNK
     Route: 042
     Dates: start: 20170605, end: 20170606
  59. LABETOL [Concomitant]
     Indication: PRODUCT USED FOR UNKNOWN INDICATION
     Dosage: 5 MG, UNK
     Route: 042
     Dates: start: 20170606, end: 20170606

REACTIONS (5)
  - Adrenal insufficiency [Recovered/Resolved]
  - Respiratory failure [Recovered/Resolved]
  - Osmotic demyelination syndrome [Not Recovered/Not Resolved]
  - Shock [Recovered/Resolved]
  - Cardiac arrest [Recovered/Resolved]

NARRATIVE: CASE EVENT DATE: 20170524
